FAERS Safety Report 23816163 (Version 1)
Quarter: 2024Q2

REPORT INFORMATION
  Report Type: Spontaneous
  Country: US (occurrence: US)
  Receive Date: 20240503
  Receipt Date: 20240503
  Transmission Date: 20240716
  Serious: Yes (Other)
  Sender: FDA-Public Use
  Company Number: US-SUNOVION-2024SUN000330

PATIENT

DRUGS (4)
  1. APTIOM [Suspect]
     Active Substance: ESLICARBAZEPINE ACETATE
     Indication: Generalised tonic-clonic seizure
     Dosage: UNK
     Route: 048
     Dates: start: 201909
  2. APTIOM [Suspect]
     Active Substance: ESLICARBAZEPINE ACETATE
     Dosage: 1800 MG, HS
     Route: 048
  3. APTIOM [Suspect]
     Active Substance: ESLICARBAZEPINE ACETATE
     Dosage: 2100 MG, HS
     Route: 048
     Dates: start: 20240402
  4. XCOPRI [Concomitant]
     Active Substance: CENOBAMATE
     Indication: Seizure
     Dosage: 300 MG, HS
     Route: 048
     Dates: start: 201909

REACTIONS (7)
  - Seizure [Recovering/Resolving]
  - Petit mal epilepsy [Recovered/Resolved]
  - Vagal nerve stimulator implantation [Unknown]
  - Vagal nerve stimulator removal [Unknown]
  - Patient-device incompatibility [Unknown]
  - Prescribed overdose [Unknown]
  - Off label use [Unknown]
